FAERS Safety Report 23446610 (Version 1)
Quarter: 2024Q1

REPORT INFORMATION
  Report Type: Spontaneous
  Country: US (occurrence: US)
  Receive Date: 20240126
  Receipt Date: 20240126
  Transmission Date: 20240409
  Serious: Yes (Other)
  Sender: FDA-Public Use
  Company Number: US-BRISTOL-MYERS SQUIBB COMPANY-2024-011924

PATIENT
  Age: 59 Year
  Sex: Female
  Weight: 57.15 kg

DRUGS (1)
  1. LENALIDOMIDE [Suspect]
     Active Substance: LENALIDOMIDE
     Indication: Plasma cell myeloma
     Dosage: FREQUENCY: NEVER FILLED
     Route: 048

REACTIONS (15)
  - Somnolence [Unknown]
  - Fatigue [Unknown]
  - Decreased appetite [Unknown]
  - White blood cell count decreased [Unknown]
  - Asthenia [Unknown]
  - Rosacea [Unknown]
  - COVID-19 [Unknown]
  - Fall [Unknown]
  - Hypopnoea [Unknown]
  - Skin exfoliation [Unknown]
  - Encephalitis viral [Unknown]
  - Weight decreased [Unknown]
  - Femur fracture [Unknown]
  - Hip fracture [Unknown]
  - Parkinson^s disease [Unknown]

NARRATIVE: CASE EVENT DATE: 20160101
